FAERS Safety Report 8241345-7 (Version None)
Quarter: 2012Q1

REPORT INFORMATION
  Report Type: 
  Country: None (occurrence: None)
  Receive Date: 20120328
  Receipt Date: 20120320
  Transmission Date: 20120608
  Serious: Yes (Death, Other)
  Sender: FDA-Public Use
  Company Number: US-ABBOTT-11P-163-0884021-00

PATIENT
  Sex: Male
  Weight: 93.524 kg

DRUGS (49)
  1. LOCHYDRIN 12% [Concomitant]
     Indication: PRODUCT USED FOR UNKNOWN INDICATION
     Dates: start: 20110929
  2. LORAZEPAM [Concomitant]
     Indication: ANXIETY
     Dosage: 0.5 MG /1 TAB ONCE EVERY 6 HOURS PRN
     Route: 048
     Dates: start: 20111201
  3. PREDNISONE TAB [Concomitant]
     Dosage: 30MG = 3 TAB DAILY
     Route: 048
     Dates: start: 20111204, end: 20111206
  4. SENOKOT [Concomitant]
     Indication: CONSTIPATION
     Dosage: 8.6-50 MG = 1 TAB PRN OR HS, MAY TITRATE
     Route: 048
     Dates: start: 20111201
  5. PROAIR HFA [Concomitant]
     Indication: DYSPNOEA
     Dosage: 108(90 BASE) MCG/ACT, 1 IN 4 HR PRN
     Route: 055
     Dates: start: 20111201, end: 20111202
  6. AMIODARONE HCL [Concomitant]
     Indication: PRODUCT USED FOR UNKNOWN INDICATION
     Dosage: 200 MG = 1 TAB DAILY
     Route: 048
     Dates: start: 20111201
  7. ACETAMINOPHEN [Concomitant]
     Indication: PRODUCT USED FOR UNKNOWN INDICATION
     Route: 048
  8. OXYFAST [Concomitant]
     Indication: DYSPNOEA
     Dosage: CONCENTRATE, SL ATC, 1 IN 4 HRS
     Route: 048
     Dates: start: 20111201
  9. OXYFAST [Concomitant]
     Dosage: ONCE HOURLY AS NEEDED
     Dates: start: 20111201
  10. CARDIZEM [Concomitant]
     Indication: PRODUCT USED FOR UNKNOWN INDICATION
     Dosage: 120 MG = 1 TAB DAILY
     Route: 048
     Dates: start: 20111201
  11. GUAIFENESIN [Concomitant]
     Indication: COUGH
     Dosage: 400MG = 1 TAB, 1 IN 6 HR PRN
     Route: 048
     Dates: start: 20111201
  12. PREDNISONE TAB [Concomitant]
     Dosage: 10MG = 1 TAB DAILY
     Route: 048
     Dates: start: 20111210, end: 20111212
  13. OXYGEN [Concomitant]
     Indication: PRODUCT USED FOR UNKNOWN INDICATION
     Dosage: 10 L/MIN, CONTINUOUS MASK
     Dates: start: 20111201
  14. ACETAMINOPHEN [Concomitant]
     Indication: PAIN
     Dosage: 650 MG (CP) = 1 IN 6 HR PRN
     Route: 054
     Dates: start: 20111201
  15. PROCHLORPERAZINE MALEATE [Concomitant]
     Indication: VOMITING
  16. PREDNISONE TAB [Concomitant]
     Dosage: 10 MG DAILY, AFTER TAPER DOSE
     Dates: start: 20111214
  17. ACETAMINOPHEN [Concomitant]
     Indication: PYREXIA
  18. ATROPINE SULFATE [Concomitant]
     Indication: SECRETION DISCHARGE
     Dosage: UNDER TONGUE 1 IN 4 HR PRN
     Route: 047
     Dates: start: 20111201
  19. SENOKOT [Concomitant]
     Dosage: IF INEFFECTIVE, TITRATE UP TO 4 IN 1 D PRN/SCHEDULED PR
     Route: 054
     Dates: start: 20111201
  20. DUONEB [Concomitant]
     Indication: DYSPNOEA
     Dosage: 0.5-2.5 (3) MG/3ML, 1 IN 4 HR PRN
     Route: 055
     Dates: start: 20111202
  21. HUMIRA [Suspect]
     Route: 058
     Dates: start: 20111201
  22. DIOVAN [Concomitant]
     Indication: PRODUCT USED FOR UNKNOWN INDICATION
     Route: 048
  23. LOVASTATIN [Concomitant]
     Indication: PRODUCT USED FOR UNKNOWN INDICATION
     Route: 048
  24. LORAZEPAM [Concomitant]
     Dosage: 1 MG (CP) = 1 TAB 1 IN 6 HR PRN, (10) PO
     Route: 048
     Dates: start: 20111201
  25. VITAMIN B-12 [Concomitant]
     Indication: PRODUCT USED FOR UNKNOWN INDICATION
     Dosage: 1000 MCG = 1 TAB DAILY
     Route: 048
     Dates: start: 20111201
  26. CLOBETASOL PROPIONATE [Concomitant]
     Indication: PRODUCT USED FOR UNKNOWN INDICATION
     Dosage: 0.05% = 1 UNIT DAILY, EXTERNAL
     Dates: start: 20111201
  27. GUAIFENESIN [Concomitant]
     Indication: RESPIRATORY TRACT CONGESTION
  28. PROCHLORPERAZINE [Concomitant]
     Indication: NAUSEA
     Dosage: 25 MG (CP), 1 IN 12 HR PRN
     Route: 054
     Dates: start: 20111201
  29. PROCHLORPERAZINE [Concomitant]
     Indication: VOMITING
  30. ENEMA BAG/CATHETER/TUBING MISCELLANEOUS SOAP SUDS [Concomitant]
     Indication: CONSTIPATION
     Dosage: AS NEEDED
     Route: 054
     Dates: start: 20111201
  31. HUMIRA [Suspect]
     Indication: PSORIASIS
     Route: 058
     Dates: start: 20090323
  32. BAYER LOW STRENGTH [Concomitant]
     Indication: PRODUCT USED FOR UNKNOWN INDICATION
     Route: 048
  33. DULCOLAX [Concomitant]
     Indication: CONSTIPATION
     Dosage: 1, DAILY AS NEEDED
     Route: 054
     Dates: start: 20111201
  34. MINERAL OIL [Concomitant]
     Indication: FAECALOMA
     Dosage: AS REQUIRED
     Route: 054
     Dates: start: 20111201
  35. COREG [Concomitant]
     Indication: PRODUCT USED FOR UNKNOWN INDICATION
  36. TRICRIMCINOLONE 0.1% [Concomitant]
     Indication: PRODUCT USED FOR UNKNOWN INDICATION
     Dosage: QD  PRN
     Dates: start: 20090507
  37. CARVEDILOL [Concomitant]
     Indication: PRODUCT USED FOR UNKNOWN INDICATION
     Route: 048
  38. ASPIRIN [Concomitant]
     Indication: PRODUCT USED FOR UNKNOWN INDICATION
     Dosage: DAILY, ADULT LOW STRENGTH CHEWABLE
     Route: 048
     Dates: start: 20111201
  39. POTASSIUM CHLORIDE [Concomitant]
     Indication: PRODUCT USED FOR UNKNOWN INDICATION
     Dosage: 20 MEQ = 2 TAB DAILY, EXTENDED RELEASE
     Route: 048
     Dates: start: 20111201
  40. HALOPERIDOL LACTATE [Concomitant]
     Indication: AGITATION
     Dosage: 1 MG (0.5ML), 1 IN 6 HR PRN
     Route: 048
     Dates: start: 20111201
  41. PROCHLORPERAZINE MALEATE [Concomitant]
     Indication: NAUSEA
     Dosage: 10 MG (CP) = 1 TAB, 1 IN 6 HR PRN
     Route: 048
     Dates: start: 20111201
  42. SYMBICORT [Concomitant]
     Indication: PRODUCT USED FOR UNKNOWN INDICATION
     Dosage: 160-4.5 MCG INHALER, 2 IN 1 DAY
     Route: 055
     Dates: start: 20111201
  43. SPIRIVA [Concomitant]
     Indication: PRODUCT USED FOR UNKNOWN INDICATION
     Dosage: 18 MCG INHALER, ONE PUFF DAILY
     Route: 055
     Dates: start: 20111201
  44. LINEZOLID [Concomitant]
     Indication: PRODUCT USED FOR UNKNOWN INDICATION
     Dosage: (600 MG = 1 TAB) TWICE DAILY
     Route: 048
     Dates: start: 20111201, end: 20111202
  45. PREDNISONE TAB [Concomitant]
     Indication: PRODUCT USED FOR UNKNOWN INDICATION
     Dosage: 40MG = 4 TAB DAILY
     Route: 048
     Dates: start: 20111202, end: 20111203
  46. PREDNISONE TAB [Concomitant]
     Dosage: 20MG = 2 TAB DAILY
     Route: 048
     Dates: start: 20111207, end: 20111209
  47. OXYGEN [Concomitant]
     Dosage: 50% VENTI MASK DURING DAY
     Dates: start: 20111201
  48. SODIUM PHOSPHATES [Concomitant]
     Indication: CONSTIPATION
     Dosage: 7-19 GM/118ML AS NEEDED
     Route: 054
     Dates: start: 20111201
  49. REMEDY CALAZIME [Concomitant]
     Indication: PRODUCT USED FOR UNKNOWN INDICATION
     Dosage: 0.2-20%, EXT PASTE, PRN TO AFFECTED AREA
     Route: 061
     Dates: start: 20111204

REACTIONS (8)
  - PNEUMONIA [None]
  - HYPERTENSION [None]
  - STAPHYLOCOCCAL INFECTION [None]
  - ATRIAL FIBRILLATION [None]
  - RENAL FAILURE CHRONIC [None]
  - CHRONIC OBSTRUCTIVE PULMONARY DISEASE [None]
  - CARDIAC FAILURE CONGESTIVE [None]
  - MACROCYTOSIS [None]
